FAERS Safety Report 17730261 (Version 2)
Quarter: 2020Q2

REPORT INFORMATION
  Report Type: Spontaneous
  Country: CN (occurrence: CN)
  Receive Date: 20200430
  Receipt Date: 20200530
  Transmission Date: 20200714
  Serious: Yes (Other)
  Sender: FDA-Public Use
  Company Number: CN-ROCHE-2590542

PATIENT
  Age: 32 Year
  Sex: Female

DRUGS (4)
  1. PERJETA [Suspect]
     Active Substance: PERTUZUMAB
     Indication: HER2 POSITIVE BREAST CANCER
     Dosage: FIRST DOSE 840 MG, MAINTENANCE 420 MG, 3 WEEKS A CYCLE
     Route: 065
  2. PACLITAXEL. [Concomitant]
     Active Substance: PACLITAXEL
     Indication: HER2 POSITIVE BREAST CANCER
     Route: 065
  3. HERCEPTIN [Suspect]
     Active Substance: TRASTUZUMAB
     Indication: HER2 POSITIVE BREAST CANCER
     Dosage: FIRST DOSE 4 MG/KG, MAINTENANCE 2 MG/KG, 1 WEEK A CYCLE
     Route: 065
  4. CARBOPLATIN. [Concomitant]
     Active Substance: CARBOPLATIN
     Indication: HER2 POSITIVE BREAST CANCER
     Dosage: AUC = 2, DAY 1, 8, 15, 4 WEEKS A CYCLE
     Route: 065

REACTIONS (3)
  - Neurotoxicity [Unknown]
  - Bone marrow failure [Unknown]
  - Rash [Unknown]
